FAERS Safety Report 19928168 (Version 2)
Quarter: 2021Q4

REPORT INFORMATION
  Report Type: Spontaneous
  Country: IT (occurrence: IT)
  Receive Date: 20211007
  Receipt Date: 20211121
  Transmission Date: 20220303
  Serious: Yes (Death, Other)
  Sender: FDA-Public Use
  Company Number: None

PATIENT
  Age: 69 Year
  Sex: Male
  Weight: 82 kg

DRUGS (5)
  1. KEYTRUDA [Suspect]
     Active Substance: PEMBROLIZUMAB
     Indication: Lung neoplasm malignant
     Dosage: 200 MILLIGRAM; POWDER FOR CONCENTRATE FOR SOLUTION FOR INFUSION
     Route: 041
     Dates: start: 20210513, end: 20210816
  2. CARBOPLATIN [Concomitant]
     Active Substance: CARBOPLATIN
     Dosage: UNK
     Dates: start: 20210422, end: 20210705
  3. COMIRNATY [Concomitant]
     Active Substance: TOZINAMERAN
     Indication: COVID-19 immunisation
     Dosage: 0.3 MILLILITER
     Dates: start: 20210410, end: 20210505
  4. COMIRNATY [Concomitant]
     Active Substance: TOZINAMERAN
     Dosage: 0.3 MILLILITER
     Dates: start: 20210505
  5. PACLITAXEL [Concomitant]
     Active Substance: PACLITAXEL
     Dosage: UNK
     Dates: start: 20210422, end: 20210705

REACTIONS (3)
  - Interstitial lung disease [Fatal]
  - Cough [Fatal]
  - Dyspnoea [Fatal]

NARRATIVE: CASE EVENT DATE: 20210905
